FAERS Safety Report 5692571-2 (Version None)
Quarter: 2008Q2

REPORT INFORMATION
  Report Type: 
  Country: None (occurrence: None)
  Receive Date: 20080401
  Receipt Date: 20080318
  Transmission Date: 20081010
  Serious: Yes (Hospitalization)
  Sender: FDA-Public Use
  Company Number: 2008BI005880

PATIENT
  Age: 54 Year
  Sex: Male

DRUGS (8)
  1. TYSABRI [Suspect]
     Indication: MULTIPLE SCLEROSIS
     Dosage: IV
     Dates: start: 20080125
  2. AVONEX [Concomitant]
  3. AMANTADINE HCL [Concomitant]
  4. BACLOFEN [Concomitant]
  5. PAXIL [Concomitant]
  6. PROTONIX [Concomitant]
  7. IRON [Concomitant]
  8. NICODERM [Concomitant]

REACTIONS (13)
  - ASTHENIA [None]
  - BLOOD CREATINE PHOSPHOKINASE INCREASED [None]
  - BLOOD UREA INCREASED [None]
  - CONDITION AGGRAVATED [None]
  - DYSSTASIA [None]
  - FALL [None]
  - FEMUR FRACTURE [None]
  - HEAD INJURY [None]
  - HIP FRACTURE [None]
  - LEUKOCYTOSIS [None]
  - LOSS OF CONSCIOUSNESS [None]
  - MULTIPLE SCLEROSIS [None]
  - PAIN [None]
